FAERS Safety Report 6407854-8 (Version None)
Quarter: 2009Q4

REPORT INFORMATION
  Report Type: 
  Country: None (occurrence: None)
  Receive Date: 20091020
  Receipt Date: 20091005
  Transmission Date: 20100525
  Serious: Yes (Hospitalization, Disabling, Other)
  Sender: FDA-Public Use
  Company Number: GB-MERCK-0901GBR00055

PATIENT
  Age: 78 Year
  Sex: Male

DRUGS (4)
  1. ZOCOR [Suspect]
     Route: 048
     Dates: start: 20051101
  2. ITRACONAZOLE [Suspect]
     Indication: ASPERGILLOMA
     Route: 065
     Dates: start: 20051201
  3. WARFARIN [Concomitant]
     Indication: PULMONARY EMBOLISM
     Route: 065
  4. GOSERELIN ACETATE [Concomitant]
     Indication: PROSTATE CANCER
     Route: 065

REACTIONS (8)
  - ABASIA [None]
  - ASPERGILLOMA [None]
  - BLOOD CREATINE PHOSPHOKINASE INCREASED [None]
  - DRUG INTERACTION [None]
  - MYALGIA [None]
  - MYOPATHY [None]
  - POLYNEUROPATHY [None]
  - UBIQUINONE DECREASED [None]
